FAERS Safety Report 10180894 (Version 2)
Quarter: 2014Q2

REPORT INFORMATION
  Report Type: Spontaneous
  Country: US (occurrence: US)
  Receive Date: 20140519
  Receipt Date: 20140609
  Transmission Date: 20141212
  Serious: Yes (Other)
  Sender: FDA-Public Use
  Company Number: US-AMGEN INC.-USASP2014008781

PATIENT
  Age: 71 Year
  Sex: Female

DRUGS (4)
  1. PROLIA [Suspect]
     Indication: OSTEOPOROSIS POSTMENOPAUSAL
     Dosage: UNK UNK, Q6MO
     Route: 065
     Dates: start: 20110411
  2. CALCIUM [Concomitant]
  3. VITAMIN D                          /00107901/ [Concomitant]
  4. MULTIVITAMIN                       /00097801/ [Concomitant]

REACTIONS (7)
  - Exposed bone in jaw [Unknown]
  - Oral infection [Unknown]
  - Gingival swelling [Unknown]
  - Gingival pain [Unknown]
  - Device failure [Unknown]
  - Gingivitis [Unknown]
  - Gingival polyp [Unknown]
